FAERS Safety Report 10335201 (Version 1)
Quarter: 2014Q3

REPORT INFORMATION
  Report Type: Spontaneous
  Country: US (occurrence: US)
  Receive Date: 20140723
  Receipt Date: 20140723
  Transmission Date: 20150326
  Serious: Yes (Other)
  Sender: FDA-Public Use
  Company Number: US-BAYER-2014-109307

PATIENT
  Age: 29 Year
  Sex: Female

DRUGS (6)
  1. GATIFLOXACIN. [Concomitant]
     Active Substance: GATIFLOXACIN
     Indication: EYE IRRITATION
     Route: 047
  2. FINACEA [Suspect]
     Active Substance: AZELAIC ACID
     Indication: ROSACEA
     Route: 061
  3. DUAC [Suspect]
     Active Substance: BENZOYL PEROXIDE\CLINDAMYCIN PHOSPHATE
     Route: 061
  4. SALICYLIC ACID [Suspect]
     Active Substance: SALICYLIC ACID
     Indication: MICROGRAPHIC SKIN SURGERY
     Dosage: UNK
     Route: 061
  5. TRETINOIN. [Suspect]
     Active Substance: TRETINOIN
     Route: 061
  6. ACYCLOVIR [ACICLOVIR] [Concomitant]
     Active Substance: ACYCLOVIR
     Dosage: 400 MG, QID
     Route: 048

REACTIONS (2)
  - Eye disorder [Recovered/Resolved]
  - Keratitis [Recovered/Resolved]
